FAERS Safety Report 21536926 (Version 1)
Quarter: 2022Q4

REPORT INFORMATION
  Report Type: Spontaneous
  Country: US (occurrence: None)
  Receive Date: 20221101
  Receipt Date: 20221101
  Transmission Date: 20230112
  Serious: Yes (Other)
  Sender: FDA-Public Use
  Company Number: None

PATIENT
  Age: 69 Year
  Sex: Female
  Weight: 64.8 kg

DRUGS (1)
  1. POLYETHYLENE GLYCOL 3350 [Suspect]
     Active Substance: POLYETHYLENE GLYCOL 3350
     Indication: Colonoscopy
     Dosage: OTHER FREQUENCY : THE NIGHT BEFORE;?OTHER ROUTE : MIXED WITH GATORADE AND DRANK;?
     Route: 050
     Dates: start: 20221030, end: 20221030

REACTIONS (7)
  - Vomiting projectile [None]
  - Heart rate increased [None]
  - Dizziness [None]
  - Headache [None]
  - Diarrhoea [None]
  - Hypertension [None]
  - Malaise [None]

NARRATIVE: CASE EVENT DATE: 20221030
